FAERS Safety Report 8320344-0 (Version None)
Quarter: 2012Q2

REPORT INFORMATION
  Report Type: 
  Country: None (occurrence: None)
  Receive Date: 20120430
  Receipt Date: 20120424
  Transmission Date: 20120825
  Serious: Yes (Death)
  Sender: FDA-Public Use
  Company Number: US-PFIZER INC-2012102435

PATIENT
  Sex: Male

DRUGS (1)
  1. CAMPTOSAR [Suspect]
     Indication: GALLBLADDER CANCER
     Dosage: 360 MG, EVERY 2 WEEKS

REACTIONS (2)
  - DISEASE PROGRESSION [None]
  - GALLBLADDER CANCER [None]
